FAERS Safety Report 16266965 (Version 2)
Quarter: 2019Q4

REPORT INFORMATION
  Report Type: Spontaneous
  Country: US (occurrence: US)
  Receive Date: 20190502
  Receipt Date: 20191202
  Transmission Date: 20200122
  Serious: No
  Sender: FDA-Public Use
  Company Number: US-SA-2019SA119914

PATIENT
  Age: 70 Year
  Sex: Female

DRUGS (13)
  1. MULTIVITAMINS [VITAMINS NOS] [Concomitant]
     Active Substance: VITAMINS
  2. TURMERIC [CURCUMA LONGA] [Concomitant]
     Active Substance: HERBALS\TURMERIC
  3. VSL#3 [Concomitant]
     Active Substance: PROBIOTICS NOS
  4. DUPIXENT [Suspect]
     Active Substance: DUPILUMAB
     Indication: DERMATITIS ATOPIC
     Dosage: 300 MG, QOW
     Route: 058
     Dates: start: 201811
  5. BIOTIN [Concomitant]
     Active Substance: BIOTIN
  6. CALCIUM CARBONATE. [Concomitant]
     Active Substance: CALCIUM CARBONATE
  7. SEREVENT DISKUS [Concomitant]
     Active Substance: SALMETEROL XINAFOATE
  8. SPIRIVA [Concomitant]
     Active Substance: TIOTROPIUM BROMIDE MONOHYDRATE
  9. VITAMIN C [Concomitant]
     Active Substance: ASCORBIC ACID
  10. ASPIRIN (E.C.) [Concomitant]
     Active Substance: ASPIRIN
  11. VITAMIN D3 [Concomitant]
     Active Substance: CHOLECALCIFEROL
  12. SIMVASTATIN. [Concomitant]
     Active Substance: SIMVASTATIN
  13. ZYRTEC [Concomitant]
     Active Substance: CETIRIZINE HYDROCHLORIDE

REACTIONS (3)
  - Pain [Unknown]
  - Road traffic accident [Unknown]
  - Ear discomfort [Unknown]
